FAERS Safety Report 7009943-6 (Version None)
Quarter: 2010Q3

REPORT INFORMATION
  Report Type: 
  Country: None (occurrence: None)
  Receive Date: 20100921
  Receipt Date: 20100903
  Transmission Date: 20110219
  Serious: Yes (Life-Threatening, Hospitalization, Other)
  Sender: FDA-Public Use
  Company Number: UK-ACCORD-003158

PATIENT
  Age: 79 Year
  Sex: Male

DRUGS (10)
  1. SIMVASTATIN [Suspect]
     Indication: PRODUCT USED FOR UNKNOWN INDICATION
  2. FLUCONAZOLE [Suspect]
     Indication: PRODUCT USED FOR UNKNOWN INDICATION
  3. FOLIC ACID [Concomitant]
  4. GOSERELIN (GOSERELIN) [Concomitant]
  5. INSULIN (INSULIN) [Concomitant]
  6. LISINOPRIL [Concomitant]
  7. MOMETASONE FUROATE [Concomitant]
  8. TERAZOSIN HCL [Concomitant]
  9. THIAMINE (THIAMINE) [Concomitant]
  10. TOLTERODINE TARTRATE [Concomitant]

REACTIONS (10)
  - CEREBROVASCULAR ACCIDENT [None]
  - DRUG INTERACTION [None]
  - DYSPHAGIA [None]
  - HEMIPARESIS [None]
  - MASTICATION DISORDER [None]
  - NAUSEA [None]
  - RENAL FAILURE ACUTE [None]
  - RHABDOMYOLYSIS [None]
  - SPEECH DISORDER [None]
  - VOMITING [None]
